FAERS Safety Report 6717526-8 (Version None)
Quarter: 2010Q2

REPORT INFORMATION
  Report Type: 
  Country: None (occurrence: None)
  Receive Date: 20100503
  Receipt Date: 20100414
  Transmission Date: 20101027
  Serious: Yes (Hospitalization)
  Sender: FDA-Public Use
  Company Number: APP201000248

PATIENT
  Sex: Female

DRUGS (4)
  1. VANCOMYCIN HYDROCHLORIDE [Suspect]
     Indication: ENDOPHTHALMITIS
  2. PIPERACILLIN AND TAZOBACTAM [Suspect]
     Indication: ENDOPHTHALMITIS
  3. PREDNISONE [Concomitant]
  4. COUMADIN [Concomitant]

REACTIONS (7)
  - ASTHENIA [None]
  - DIZZINESS [None]
  - MOUTH ULCERATION [None]
  - PYREXIA [None]
  - SYSTEMIC LUPUS ERYTHEMATOSUS DISEASE ACTIVITY INDEX INCREASED [None]
  - SYSTEMIC LUPUS ERYTHEMATOSUS RASH [None]
  - TACHYCARDIA [None]
